FAERS Safety Report 18153291 (Version 2)
Quarter: 2020Q3

REPORT INFORMATION
  Report Type: Spontaneous
  Country: US (occurrence: US)
  Receive Date: 20200815
  Receipt Date: 20200831
  Transmission Date: 20201103
  Serious: No
  Sender: FDA-Public Use
  Company Number: US-TEVA-2020-US-1814297

PATIENT
  Sex: Female

DRUGS (1)
  1. LIDOCAINE TEVA [Suspect]
     Active Substance: LIDOCAINE
     Indication: BACK PAIN
     Dosage: USED FOR OVER FIVE YEARS
     Route: 062

REACTIONS (3)
  - Product adhesion issue [Unknown]
  - Product use in unapproved indication [Unknown]
  - Drug ineffective [Unknown]
